FAERS Safety Report 4442041-4 (Version None)
Quarter: 2004Q3

REPORT INFORMATION
  Report Type: 
  Country: None (occurrence: None)
  Receive Date: 20040901
  Receipt Date: 20040819
  Transmission Date: 20050211
  Serious: Yes (Other)
  Sender: FDA-Public Use
  Company Number: 2004058015

PATIENT
  Age: 80 Year
  Sex: Female
  Weight: 77.1115 kg

DRUGS (6)
  1. LIPITOR [Suspect]
     Indication: BLOOD CHOLESTEROL INCREASED
     Dosage: 20 MG (20 MG, 1 IN 1 D), ORAL
     Route: 048
  2. FOSINOPRIL SODIUM [Concomitant]
  3. FOLIC ACID [Concomitant]
  4. ACETYLSALICYLIC ACID [Concomitant]
  5. MULTIVITAMIN [Concomitant]
  6. CALCIUM [Concomitant]

REACTIONS (3)
  - POLLAKIURIA [None]
  - TERMINAL DRIBBLING [None]
  - TREATMENT NONCOMPLIANCE [None]
